FAERS Safety Report 10219098 (Version 1)
Quarter: 2014Q2

REPORT INFORMATION
  Report Type: Spontaneous
  Country: DE (occurrence: DE)
  Receive Date: 20140605
  Receipt Date: 20140605
  Transmission Date: 20141212
  Serious: Yes (Disabling)
  Sender: FDA-Public Use
  Company Number: DE-WATSON-2014-11612

PATIENT
  Age: 66 Year
  Sex: Female
  Weight: 39 kg

DRUGS (3)
  1. LEVOFLOXACIN (UNKNOWN) [Suspect]
     Indication: PNEUMONIA
     Dosage: 500 MG, DAILY
     Route: 048
     Dates: start: 20140117, end: 20140203
  2. CITALOPRAM [Concomitant]
     Indication: ADJUSTMENT DISORDER
     Dosage: 10 MG, UNK
     Route: 048
     Dates: start: 2013
  3. RITUXIMAB [Concomitant]
     Indication: NON-HODGKIN^S LYMPHOMA
     Dosage: UNK
     Route: 042
     Dates: start: 2013

REACTIONS (1)
  - Tendon rupture [Not Recovered/Not Resolved]
